FAERS Safety Report 15822805 (Version 1)
Quarter: 2019Q1

REPORT INFORMATION
  Report Type: Spontaneous
  Country: US (occurrence: US)
  Receive Date: 20190114
  Receipt Date: 20190114
  Transmission Date: 20190417
  Serious: Yes (Death, Hospitalization, Other)
  Sender: FDA-Public Use
  Company Number: US-GILEAD-2019-0383797

PATIENT
  Age: 34 Year
  Sex: Male

DRUGS (12)
  1. SOVALDI [Suspect]
     Active Substance: SOFOSBUVIR
     Indication: HEPATITIS C
     Dosage: UNK UNK, QD
     Route: 065
     Dates: start: 20180703, end: 20180924
  2. CLOFAZIMINE [Suspect]
     Active Substance: CLOFAZIMINE
     Indication: TUBERCULOSIS
     Dosage: UNK UNK, QD
     Route: 065
     Dates: start: 20180514
  3. ABACAVIR. [Concomitant]
     Active Substance: ABACAVIR
     Dosage: UNK
  4. IMIPENEM [Suspect]
     Active Substance: IMIPENEM
     Indication: TUBERCULOSIS
     Dosage: UNK UNK, QD
     Route: 065
     Dates: start: 20180514, end: 20181003
  5. PYRIDOXINE [Concomitant]
     Active Substance: PYRIDOXINE
  6. 3TC [Concomitant]
     Active Substance: LAMIVUDINE
  7. DACLATASVIR. [Suspect]
     Active Substance: DACLATASVIR
     Indication: HEPATITIS C
     Dosage: UNK UNK, QD
     Route: 065
     Dates: start: 20180703, end: 20180924
  8. DELAMANID [Suspect]
     Active Substance: DELAMANID
     Indication: TUBERCULOSIS
     Dosage: UNK UNK, QD
     Route: 065
     Dates: start: 20180514
  9. AMOX+AC CLAV SAN [AMOXICILLIN TRIHYDRATE;CLAVULANATE POTASSIUM] [Suspect]
     Active Substance: AMOXICILLIN\CLAVULANATE POTASSIUM
     Indication: TUBERCULOSIS
     Dosage: UNK UNK, QD
     Route: 065
     Dates: start: 20180514, end: 20181003
  10. MOXIFLOXACIN. [Suspect]
     Active Substance: MOXIFLOXACIN
     Indication: TUBERCULOSIS
     Dosage: UNK UNK, QD
     Route: 065
     Dates: start: 20180514
  11. PROTIONAMIDE [Suspect]
     Active Substance: PROTIONAMIDE
     Indication: TUBERCULOSIS
     Dosage: UNK UNK, QD
     Route: 065
     Dates: start: 20180514
  12. NEVIRAPINE. [Concomitant]
     Active Substance: NEVIRAPINE

REACTIONS (19)
  - Blindness [Unknown]
  - Alanine aminotransferase increased [Unknown]
  - Aspartate aminotransferase increased [Unknown]
  - Oral candidiasis [Unknown]
  - Vomiting [Unknown]
  - Odynophagia [Unknown]
  - Gastritis [Not Recovered/Not Resolved]
  - Platelet count decreased [Unknown]
  - Gamma-glutamyltransferase increased [Unknown]
  - Iridocyclitis [Unknown]
  - Malaise [Unknown]
  - Weight decreased [Unknown]
  - Blood pressure decreased [Unknown]
  - Cachexia [Unknown]
  - Duodenitis [Not Recovered/Not Resolved]
  - Hypophagia [Unknown]
  - Oesophagitis [Not Recovered/Not Resolved]
  - Neuropathy peripheral [Unknown]
  - HIV infection [Fatal]

NARRATIVE: CASE EVENT DATE: 20180920
